FAERS Safety Report 11707691 (Version 2)
Quarter: 2016Q1

REPORT INFORMATION
  Report Type: Report from Study
  Country: US (occurrence: US)
  Receive Date: 20151106
  Receipt Date: 20160211
  Transmission Date: 20160525
  Serious: No
  Sender: FDA-Public Use
  Company Number: US-GILEAD-2015-0180546

PATIENT
  Sex: Female

DRUGS (1)
  1. LEDIPASVIR/SOFOSBUVIR [Suspect]
     Active Substance: LEDIPASVIR\SOFOSBUVIR
     Indication: CHRONIC HEPATITIS C
     Dosage: 1 DF, QD
     Route: 048
     Dates: start: 2015, end: 201510

REACTIONS (14)
  - Fatigue [Unknown]
  - Madarosis [Unknown]
  - Dizziness [Unknown]
  - Diarrhoea [Unknown]
  - Serum ferritin decreased [Unknown]
  - Lethargy [Unknown]
  - Blood iron decreased [Unknown]
  - Anxiety [Unknown]
  - Migraine [Unknown]
  - Eye pain [Unknown]
  - Weight decreased [Unknown]
  - Oropharyngeal pain [Unknown]
  - Insomnia [Unknown]
  - Blood iron abnormal [Unknown]
